FAERS Safety Report 12730930 (Version 1)
Quarter: 2016Q3

REPORT INFORMATION
  Report Type: Spontaneous
  Country: US (occurrence: US)
  Receive Date: 20160909
  Receipt Date: 20160909
  Transmission Date: 20161109
  Serious: Yes (Life-Threatening, Hospitalization)
  Sender: FDA-Public Use
  Company Number: None

PATIENT
  Age: 49 Year
  Sex: Male
  Weight: 83.92 kg

DRUGS (6)
  1. CENTRUM SILVER FOR MEN 50+ [Concomitant]
  2. FISH OIL [Concomitant]
     Active Substance: FISH OIL
  3. BLOOD PRESSURE AND CHOLESTEROL [Concomitant]
  4. AMLODIPINE BESYLATE. [Concomitant]
     Active Substance: AMLODIPINE BESYLATE
  5. LISINOPRIL 40MG TABLET [Suspect]
     Active Substance: LISINOPRIL
     Indication: HYPERTENSION
     Dosage: 1 PILL A DAY ONCE A DAY BY MOUTH
     Route: 048
     Dates: start: 20140530, end: 20160404
  6. PRAVASTATIN SODIUM. [Concomitant]
     Active Substance: PRAVASTATIN SODIUM

REACTIONS (2)
  - Insomnia [None]
  - Drug hypersensitivity [None]

NARRATIVE: CASE EVENT DATE: 20160330
